FAERS Safety Report 7593149-6 (Version None)
Quarter: 2011Q3

REPORT INFORMATION
  Report Type: 
  Country: None (occurrence: None)
  Receive Date: 20110706
  Receipt Date: 20110701
  Transmission Date: 20111222
  Serious: Yes (Hospitalization, Other)
  Sender: FDA-Public Use
  Company Number: US-PFIZER INC-2011148101

PATIENT
  Sex: Female

DRUGS (2)
  1. GEODON [Suspect]
     Dosage: 60 MG, 2X/DAY
  2. LORAZEPAM [Suspect]
     Dosage: UNK

REACTIONS (5)
  - SCHIZOPHRENIA [None]
  - APATHY [None]
  - ILL-DEFINED DISORDER [None]
  - BIPOLAR DISORDER [None]
  - FLAT AFFECT [None]
